FAERS Safety Report 9880840 (Version 1)
Quarter: 2014Q1

REPORT INFORMATION
  Report Type: Spontaneous
  Country: US (occurrence: None)
  Receive Date: 20140204
  Receipt Date: 20140204
  Transmission Date: 20141002
  Serious: Yes (Hospitalization)
  Sender: FDA-Public Use
  Company Number: FK201400349

PATIENT
  Age: 73 Year
  Sex: Male
  Weight: 81.4 kg

DRUGS (13)
  1. LEUCOVORIN [Suspect]
     Indication: PANCREATIC CARCINOMA
     Dosage: 800 MG, CYCLICAL, INTRAVENOUS (NOT OTHERWISE SPECIFIED)
     Route: 042
     Dates: start: 20130930, end: 20131012
  2. FLUOROURACIL (FLUOROURACIL) (FLUOROURACIL) [Suspect]
     Indication: PANCREATIC CARCINOMA
     Dosage: 800 MG, CYCLICAL, INTRAVENOUS BOLUS
     Route: 040
     Dates: start: 20130930, end: 20131012
  3. IRINOTECAN (IRINOTECAN) (IRINOTECAN) [Suspect]
     Indication: PANCREATIC CARCINOMA
     Dosage: 362 MG, CYCLICAL, INTRAVENOUS (NOT OTHERWISE SPECIFIED)
     Route: 042
     Dates: start: 20130930, end: 20131012
  4. ELOXATIN (OXALIPLATIN) (OXALIPLATIN) [Suspect]
     Indication: PANCREATIC CARCINOMA
     Dosage: 170 MG, CYCLICAL, INTRAVENOUS (NOT OTHERWISE SPECIFIED)
     Route: 042
     Dates: start: 20130930, end: 20131012
  5. ASPIRIN (ACETYLSALICYLIC ACID) [Concomitant]
  6. ATORVASTATIN CALCIUM (ATORVASTATIN CALCIUM) [Concomitant]
  7. CLOPIDOGREL BISULFATE (CLOPIDOGREL BISULFATE) [Concomitant]
  8. DRONABINOL (DRONABINOL) [Concomitant]
  9. ENOXAPARIN SODIUM (ENOXAPARIN SODIUM) [Concomitant]
  10. HYDROCODONE-ACETAMINOPHEN (PROCET /0154201/) [Concomitant]
  11. LOSARTAN POTASSIUM (LOSARTAN POTASSIUM) [Concomitant]
  12. SYMBICORT (BUDESONIDE W/FORMOTEROL FUMARATE) [Concomitant]
  13. TERAZOSIN (TERAZOSIN) (TERAZOSIN) [Concomitant]

REACTIONS (4)
  - Abdominal pain [None]
  - Febrile neutropenia [None]
  - Platelet count decreased [None]
  - White blood cell count decreased [None]
